FAERS Safety Report 6097454-4 (Version None)
Quarter: 2009Q1

REPORT INFORMATION
  Report Type: 
  Country: None (occurrence: None)
  Receive Date: 20090227
  Receipt Date: 20080611
  Transmission Date: 20090719
  Serious: No
  Sender: FDA-Public Use
  Company Number: A0732441A

PATIENT

DRUGS (1)
  1. IMITREX [Suspect]
     Route: 042

REACTIONS (1)
  - DRUG DISPENSING ERROR [None]
